FAERS Safety Report 18452040 (Version 1)
Quarter: 2020Q4

REPORT INFORMATION
  Report Type: Spontaneous
  Country: US (occurrence: US)
  Receive Date: 20201102
  Receipt Date: 20201102
  Transmission Date: 20210114
  Serious: Yes (Hospitalization)
  Sender: FDA-Public Use
  Company Number: US-PFIZER INC-2653552

PATIENT
  Age: 49 Year
  Sex: Female

DRUGS (3)
  1. ERTAPENEM. [Concomitant]
     Active Substance: ERTAPENEM SODIUM
     Indication: UROSEPSIS
     Dosage: NOT REPORTED
  2. CEFTRIAXONE. [Concomitant]
     Active Substance: CEFTRIAXONE
     Indication: UROSEPSIS
     Dosage: NOT REPORTED
  3. VANCOMYCIN HCL [Suspect]
     Active Substance: VANCOMYCIN HYDROCHLORIDE
     Indication: UROSEPSIS
     Dosage: NOT REPORTED

REACTIONS (1)
  - Acute generalised exanthematous pustulosis [Unknown]
